FAERS Safety Report 10267191 (Version 1)
Quarter: 2014Q2

REPORT INFORMATION
  Report Type: Spontaneous
  Country: US (occurrence: US)
  Receive Date: 20140630
  Receipt Date: 20140630
  Transmission Date: 20141212
  Serious: No
  Sender: FDA-Public Use
  Company Number: US-JNJFOC-20140611494

PATIENT
  Sex: Male
  Weight: 76.2 kg

DRUGS (6)
  1. DURAGESIC [Suspect]
     Indication: PAIN
     Route: 062
  2. DURAGESIC [Suspect]
     Indication: PAIN
     Route: 062
  3. DURAGESIC [Suspect]
     Indication: PAIN
     Route: 062
  4. LYRICA [Concomitant]
     Indication: NEURALGIA
     Route: 048
  5. PROVIGIL [Concomitant]
     Indication: SLEEP DISORDER
     Dosage: 1-2 TIMES DAILY
     Route: 048
  6. HCTZ [Concomitant]
     Indication: SWELLING
     Dosage: 1-2 TIMES DAILY
     Route: 048

REACTIONS (6)
  - Drug ineffective [Unknown]
  - Wrong technique in drug usage process [Unknown]
  - Product adhesion issue [Unknown]
  - Application site vesicles [Unknown]
  - Wrong technique in drug usage process [Unknown]
  - Dermatitis contact [Not Recovered/Not Resolved]
